FAERS Safety Report 4500502-3 (Version None)
Quarter: 2004Q3

REPORT INFORMATION
  Report Type: 
  Country: None (occurrence: None)
  Receive Date: 20040928
  Receipt Date: 20040714
  Transmission Date: 20050211
  Serious: No
  Sender: FDA-Public Use
  Company Number: 03P-163-0241924-00

PATIENT
  Age: 76 Year
  Sex: Male
  Weight: 92.0802 kg

DRUGS (8)
  1. HUMIRA [Suspect]
     Indication: RHEUMATOID ARTHRITIS
     Dosage: 40 MG, 1 IN 2 WK, SUBCUTANEOUS
     Route: 058
     Dates: start: 20030701
  2. PREDNISONE [Concomitant]
  3. ALENDRONATE SODIUM [Concomitant]
  4. OXYGEN [Concomitant]
  5. LEVOTHYROXINE SODIUM [Concomitant]
  6. ADVAIR [Concomitant]
  7. AVODOT [Concomitant]
  8. DOXAZOSIN [Concomitant]

REACTIONS (6)
  - ASTHENIA [None]
  - CHEST PAIN [None]
  - COUGH [None]
  - JOINT SWELLING [None]
  - PAIN IN EXTREMITY [None]
  - RASH PAPULAR [None]
